FAERS Safety Report 9581265 (Version 1)
Quarter: 2013Q4

REPORT INFORMATION
  Report Type: Spontaneous
  Country: US (occurrence: US)
  Receive Date: 20131002
  Receipt Date: 20131002
  Transmission Date: 20140711
  Serious: Yes (Hospitalization, Other)
  Sender: FDA-Public Use
  Company Number: US-PFIZER INC-2013279861

PATIENT
  Sex: Male

DRUGS (2)
  1. VENLAFAXINE HCL [Suspect]
     Dosage: 100 MG, UNK
  2. VENLAFAXINE HCL [Suspect]
     Dosage: 3500 MG (BY TAKING 35 TABLETS OF 100MG AT ONCE)

REACTIONS (2)
  - Accidental overdose [Unknown]
  - Renal impairment [Unknown]
